FAERS Safety Report 24820351 (Version 7)
Quarter: 2025Q4

REPORT INFORMATION
  Report Type: Report from Study
  Country: US (occurrence: None)
  Receive Date: 20250108
  Receipt Date: 20251116
  Transmission Date: 20260117
  Serious: Yes (Other)
  Sender: UCB
  Company Number: US-UCBSA-2025000858

PATIENT
  Age: 40 Year
  Weight: 68.1 kg

DRUGS (7)
  1. FENFLURAMINE [Suspect]
     Active Substance: FENFLURAMINE
     Indication: Lennox-Gastaut syndrome
     Dosage: 6 MILLILITER, 2X/DAY (BID)
  2. FENFLURAMINE [Suspect]
     Active Substance: FENFLURAMINE
     Dosage: 8 MILLILITER, 2X/DAY (BID)
  3. LACOSAMIDE [Concomitant]
     Active Substance: LACOSAMIDE
     Indication: Lennox-Gastaut syndrome
     Dosage: 300 MILLIGRAM, 2X/DAY (BID)
  4. LACOSAMIDE [Concomitant]
     Active Substance: LACOSAMIDE
     Indication: Epilepsy
  5. LAMOTRIGINE [Concomitant]
     Active Substance: LAMOTRIGINE
     Indication: Epilepsy
     Dosage: 300 MILLIGRAM, 2X/DAY (BID)
  6. EPIDIOLEX [Concomitant]
     Active Substance: CANNABIDIOL
     Indication: Lennox-Gastaut syndrome
     Dosage: 100 MILLIGRAM, 2X/DAY (BID)
  7. EPIDIOLEX [Concomitant]
     Active Substance: CANNABIDIOL
     Indication: Epilepsy

REACTIONS (4)
  - Tricuspid valve incompetence [Unknown]
  - Left ventricular hypertrophy [Unknown]
  - Echocardiogram abnormal [Unknown]
  - Off label use [Unknown]
